FAERS Safety Report 17894728 (Version 1)
Quarter: 2020Q2

REPORT INFORMATION
  Report Type: Spontaneous
  Country: US (occurrence: US)
  Receive Date: 20200612
  Receipt Date: 20200612
  Transmission Date: 20200714
  Serious: Yes (Other)
  Sender: FDA-Public Use
  Company Number: None

PATIENT
  Age: 46 Year
  Sex: Female
  Weight: 82.6 kg

DRUGS (14)
  1. ZINC SULFATE. [Concomitant]
     Active Substance: ZINC SULFATE
     Dates: start: 20200607, end: 20200611
  2. ASCORBIC ACID (INTRAVENOUS) [Concomitant]
     Dates: start: 20200607, end: 20200610
  3. PROPOFOL DRIP [Concomitant]
     Active Substance: PROPOFOL
     Dates: start: 20200607, end: 20200608
  4. ACETYLCYSTEINE INHALATION AND PO [Concomitant]
     Dates: start: 20200607, end: 20200610
  5. ASPIRIN SUPPOSITORY X 1 DOSE [Concomitant]
     Dates: start: 20200607, end: 20200607
  6. INSULIN LISPRO [Concomitant]
     Active Substance: INSULIN LISPRO
     Dates: start: 20200607, end: 20200608
  7. PANTOPRAZOLE (INTRAVENOUS) [Concomitant]
     Dates: start: 20200607, end: 20200610
  8. ZOSYN [Concomitant]
     Active Substance: PIPERACILLIN SODIUM\TAZOBACTAM SODIUM
     Dates: start: 20200607, end: 20200611
  9. FENTANYL DRIP [Concomitant]
     Dates: start: 20200607, end: 20200610
  10. LEVALBUTOROL INHALATION [Concomitant]
     Dates: start: 20200607, end: 20200611
  11. REMDESIVIR. [Suspect]
     Active Substance: REMDESIVIR
     Indication: COVID-19
     Dosage: ?          OTHER FREQUENCY:ONCE;?
     Route: 042
     Dates: start: 20200608, end: 20200608
  12. NOREPINEPHRINE DRIP [Concomitant]
     Dates: start: 20200607, end: 20200611
  13. NORMAL SALINE DRIP [Concomitant]
     Dates: start: 20200607, end: 20200611
  14. ENOXAPARIN [Concomitant]
     Active Substance: ENOXAPARIN
     Dates: start: 20200607, end: 20200608

REACTIONS (6)
  - Septic shock [None]
  - Renal impairment [None]
  - Platelet count decreased [None]
  - Pneumonia [None]
  - Hypotension [None]
  - Hepatotoxicity [None]

NARRATIVE: CASE EVENT DATE: 20200608
